FAERS Safety Report 7314445-3 (Version None)
Quarter: 2011Q1

REPORT INFORMATION
  Report Type: 
  Country: None (occurrence: None)
  Receive Date: 20110225
  Receipt Date: 20100825
  Transmission Date: 20110831
  Serious: No
  Sender: FDA-Public Use
  Company Number: US-MYLANLABS-2010S1015716

PATIENT
  Age: 14 Year
  Sex: Male

DRUGS (1)
  1. AMNESTEEM [Suspect]

REACTIONS (3)
  - ANGER [None]
  - IMPULSIVE BEHAVIOUR [None]
  - CRYING [None]
